FAERS Safety Report 24985701 (Version 1)
Quarter: 2025Q1

REPORT INFORMATION
  Report Type: Spontaneous
  Country: US (occurrence: None)
  Receive Date: 20250217
  Receipt Date: 20250217
  Transmission Date: 20250409
  Serious: Yes (Hospitalization, Disabling)
  Sender: FDA-CTU
  Company Number: None

PATIENT
  Age: 35 Year
  Sex: Female
  Weight: 85.5 kg

DRUGS (4)
  1. ZEPBOUND [Suspect]
     Active Substance: TIRZEPATIDE
  2. HUMALOG [Concomitant]
     Active Substance: INSULIN LISPRO
  3. VITAMINS [Concomitant]
     Active Substance: VITAMINS
  4. VITAMINS [Suspect]
     Active Substance: VITAMINS

REACTIONS (2)
  - Retinal artery occlusion [None]
  - Glycosylated haemoglobin increased [None]

NARRATIVE: CASE EVENT DATE: 20241115
